FAERS Safety Report 7783638-3 (Version None)
Quarter: 2011Q3

REPORT INFORMATION
  Report Type: 
  Country: None (occurrence: None)
  Receive Date: 20110901
  Receipt Date: 20101029
  Transmission Date: 20111222
  Serious: Yes (Disabling, Other)
  Sender: FDA-Public Use
  Company Number: 226664USA

PATIENT
  Sex: Female

DRUGS (1)
  1. METOCLOPRAMIDE [Suspect]
     Indication: DYSPEPSIA
     Dosage: 30 TO 40 MG PER DAY, ORAL
     Route: 048

REACTIONS (8)
  - TARDIVE DYSKINESIA [None]
  - DEPRESSION [None]
  - DYSPHAGIA [None]
  - SPEECH DISORDER [None]
  - DYSTONIA [None]
  - MASTICATION DISORDER [None]
  - EXTRAPYRAMIDAL DISORDER [None]
  - DYSKINESIA [None]
